FAERS Safety Report 13959738 (Version 1)
Quarter: 2017Q3

REPORT INFORMATION
  Report Type: Spontaneous
  Country: US (occurrence: US)
  Receive Date: 20170912
  Receipt Date: 20170912
  Transmission Date: 20171128
  Serious: No
  Sender: FDA-Public Use
  Company Number: None

PATIENT
  Sex: Female
  Weight: 71.1 kg

DRUGS (4)
  1. XYZAL [Suspect]
     Active Substance: LEVOCETIRIZINE DIHYDROCHLORIDE
     Indication: MULTIPLE ALLERGIES
     Dosage: ?          QUANTITY:10 TABLET(S);OTHER FREQUENCY:1 TAB IN EVENING;?
     Route: 048
     Dates: start: 20170910, end: 20170911
  2. DOXYLOMINE [Concomitant]
  3. PREMARIN [Concomitant]
     Active Substance: ESTROGENS, CONJUGATED
  4. MELATONIN [Concomitant]
     Active Substance: MELATONIN

REACTIONS (2)
  - Palpitations [None]
  - Heart rate irregular [None]

NARRATIVE: CASE EVENT DATE: 20170910
